FAERS Safety Report 5408829-8 (Version None)
Quarter: 2007Q3

REPORT INFORMATION
  Report Type: 
  Country: None (occurrence: None)
  Receive Date: 20070808
  Receipt Date: 20070727
  Transmission Date: 20080115
  Serious: Yes (Hospitalization, Other)
  Sender: FDA-Public Use
  Company Number: US-PFIZER INC-2007063412

PATIENT
  Sex: Male
  Weight: 96.818 kg

DRUGS (3)
  1. CHANTIX [Suspect]
     Indication: SMOKING CESSATION THERAPY
  2. ATENOLOL [Concomitant]
  3. PRILOSEC [Concomitant]
     Indication: GASTROOESOPHAGEAL REFLUX DISEASE

REACTIONS (6)
  - DIZZINESS [None]
  - HEART RATE DECREASED [None]
  - HYPERHIDROSIS [None]
  - SINUSITIS [None]
  - SPEECH DISORDER [None]
  - THERAPY REGIMEN CHANGED [None]
